FAERS Safety Report 17315917 (Version 7)
Quarter: 2021Q1

REPORT INFORMATION
  Report Type: Spontaneous
  Country: US (occurrence: US)
  Receive Date: 20200124
  Receipt Date: 20210204
  Transmission Date: 20210419
  Serious: Yes (Other)
  Sender: FDA-Public Use
  Company Number: US-PFIZER INC-2020030629

PATIENT
  Age: 63 Year
  Sex: Female

DRUGS (5)
  1. XELJANZ XR [Suspect]
     Active Substance: TOFACITINIB CITRATE
     Indication: RHEUMATOID ARTHRITIS
     Dosage: 11 MG, DAILY
     Route: 048
     Dates: start: 201812
  2. XELJANZ XR [Suspect]
     Active Substance: TOFACITINIB CITRATE
     Indication: CROHN^S DISEASE
  3. XELJANZ XR [Suspect]
     Active Substance: TOFACITINIB CITRATE
     Indication: COLITIS ULCERATIVE
     Dosage: 11 MG, DAILY
     Route: 048
     Dates: start: 201912
  4. BUDESONIDE. [Concomitant]
     Active Substance: BUDESONIDE
     Dosage: 3 MG, DAILY
  5. BUDESONIDE. [Concomitant]
     Active Substance: BUDESONIDE
     Dosage: 6 MG, DAILY

REACTIONS (14)
  - Arthralgia [Recovering/Resolving]
  - Erythema [Not Recovered/Not Resolved]
  - Peripheral swelling [Recovering/Resolving]
  - Wound infection [Not Recovered/Not Resolved]
  - Drug ineffective [Unknown]
  - Therapeutic response unexpected [Unknown]
  - Pain [Unknown]
  - Pain in extremity [Unknown]
  - Animal scratch [Not Recovered/Not Resolved]
  - Infected bite [Not Recovered/Not Resolved]
  - Myalgia [Unknown]
  - Anxiety [Unknown]
  - Stress [Unknown]
  - Impaired healing [Unknown]

NARRATIVE: CASE EVENT DATE: 202006
